FAERS Safety Report 7960799-4 (Version None)
Quarter: 2011Q4

REPORT INFORMATION
  Report Type: 
  Country: None (occurrence: None)
  Receive Date: 20111207
  Receipt Date: 20111202
  Transmission Date: 20120403
  Serious: Yes (Hospitalization)
  Sender: FDA-Public Use
  Company Number: US-BIOGENIDEC-2011BI043013

PATIENT
  Age: 48 Year
  Sex: Female

DRUGS (1)
  1. TYSABRI [Suspect]
     Indication: MULTIPLE SCLEROSIS
     Route: 042
     Dates: start: 20080208

REACTIONS (8)
  - SENSORY LOSS [None]
  - SINUSITIS [None]
  - BRAIN INJURY [None]
  - PHARYNGITIS [None]
  - CONCUSSION [None]
  - JOINT DISLOCATION [None]
  - EAR INFECTION [None]
  - ANXIETY [None]
